FAERS Safety Report 7449851-X (Version None)
Quarter: 2011Q2

REPORT INFORMATION
  Report Type: 
  Country: None (occurrence: None)
  Receive Date: 20110502
  Receipt Date: 20110403
  Transmission Date: 20111010
  Serious: Yes (Other)
  Sender: FDA-Public Use
  Company Number: US-BAYER-201015509NA

PATIENT
  Age: 18 Year
  Sex: Female
  Weight: 79 kg

DRUGS (1)
  1. YASMIN [Suspect]
     Indication: CONTRACEPTION
     Dosage: UNK
     Route: 048
     Dates: start: 20041101, end: 20060201

REACTIONS (6)
  - GALLBLADDER DISORDER [None]
  - DIARRHOEA [None]
  - ABDOMINAL PAIN UPPER [None]
  - DYSPNOEA [None]
  - IRRITABLE BOWEL SYNDROME [None]
  - NAUSEA [None]
